FAERS Safety Report 19653147 (Version 1)
Quarter: 2021Q3

REPORT INFORMATION
  Report Type: Spontaneous
  Country: PT (occurrence: PT)
  Receive Date: 20210803
  Receipt Date: 20210803
  Transmission Date: 20211014
  Serious: Yes (Other)
  Sender: FDA-Public Use
  Company Number: NVSC2021PT170896

PATIENT
  Age: 83 Year
  Sex: Female
  Weight: 70 kg

DRUGS (1)
  1. IBUPROFEN. [Suspect]
     Active Substance: IBUPROFEN
     Indication: INFLAMMATION
     Dosage: 1200 MG, QD (400 MG DE 8H EM 8H) (INFLAMACAO DO DEDO DO PE)
     Route: 048
     Dates: start: 20210704, end: 20210705

REACTIONS (1)
  - Erythema [Recovered/Resolved]

NARRATIVE: CASE EVENT DATE: 20210704
